FAERS Safety Report 14050019 (Version 1)
Quarter: 2017Q4

REPORT INFORMATION
  Report Type: Spontaneous
  Country: FR (occurrence: FR)
  Receive Date: 20171005
  Receipt Date: 20171005
  Transmission Date: 20180321
  Serious: Yes (Hospitalization)
  Sender: FDA-Public Use
  Company Number: FR-UCBSA-2017039400

PATIENT
  Age: 56 Year
  Sex: Female

DRUGS (8)
  1. XANAX [Concomitant]
     Active Substance: ALPRAZOLAM
     Indication: ANXIETY
     Dosage: 1 DF, 3X/DAY (TID)
     Route: 048
     Dates: start: 20170207
  2. DOLIPRANE [Concomitant]
     Active Substance: ACETAMINOPHEN
     Indication: PAIN
     Dosage: 1 G, 3X/DAY (TID)
     Route: 048
     Dates: start: 20170403
  3. SPASFON [Concomitant]
     Active Substance: PHLOROGLUCINOL\1,3,5-TRIMETHOXYBENZENE
     Indication: GASTROINTESTINAL DISORDER
     Dosage: 6 DF, ONCE DAILY (QD)
     Route: 048
     Dates: start: 20170822
  4. ATARAX [Concomitant]
     Active Substance: HYDROXYZINE HYDROCHLORIDE
     Indication: ANXIETY
     Dosage: 0.5 DF, 3X/DAY (TID)
     Route: 048
     Dates: start: 20170428
  5. RISPERDAL [Suspect]
     Active Substance: RISPERIDONE
     Indication: AGGRESSION
     Dosage: 0.25 MG, ONCE DAILY (QD)
     Route: 048
     Dates: start: 20170904, end: 20170909
  6. BUSPIRONE HYDROCHLORIDE. [Concomitant]
     Active Substance: BUSPIRONE HYDROCHLORIDE
     Indication: ANXIETY
     Dosage: UNK
     Route: 048
     Dates: start: 20170201
  7. KEPPRA [Suspect]
     Active Substance: LEVETIRACETAM
     Indication: EPILEPSY
     Dosage: 1 DF, 2X/DAY (BID)
     Route: 048
     Dates: start: 20170209, end: 20170909
  8. ATHYMIL [Concomitant]
     Active Substance: MIANSERIN HYDROCHLORIDE
     Indication: DEPRESSION
     Dosage: 1 DF, ONCE DAILY (QD)
     Route: 048
     Dates: start: 20170501

REACTIONS (3)
  - Seizure [Recovered/Resolved]
  - Abnormal behaviour [Recovered/Resolved]
  - Salivary hypersecretion [Recovered/Resolved]

NARRATIVE: CASE EVENT DATE: 201709
